FAERS Safety Report 11221528 (Version 2)
Quarter: 2015Q2

REPORT INFORMATION
  Report Type: Spontaneous
  Country: FR (occurrence: FR)
  Receive Date: 20150626
  Receipt Date: 20150630
  Transmission Date: 20150821
  Serious: Yes (Death, Other)
  Sender: FDA-Public Use
  Company Number: FR-INCYTE CORPORATION-2015IN002947

PATIENT
  Age: 52 Year
  Sex: Male

DRUGS (4)
  1. INC424 [Suspect]
     Active Substance: RUXOLITINIB
     Dosage: 10 MG, BID
     Route: 065
  2. DAUNORUBICIN [Suspect]
     Active Substance: DAUNORUBICIN
     Indication: POLYCYTHAEMIA VERA
     Dosage: 60 MG/M2, QD
     Route: 065
  3. CYTARABINE. [Suspect]
     Active Substance: CYTARABINE
     Indication: POLYCYTHAEMIA VERA
     Dosage: 200 MG/M2, QD
     Route: 065
  4. INC424 [Suspect]
     Active Substance: RUXOLITINIB
     Indication: POLYCYTHAEMIA VERA
     Dosage: 10 MG, BID
     Route: 065

REACTIONS (2)
  - Aplasia [Fatal]
  - Intestinal obstruction [Unknown]
